FAERS Safety Report 10528848 (Version 3)
Quarter: 2014Q4

REPORT INFORMATION
  Report Type: Spontaneous
  Country: US (occurrence: US)
  Receive Date: 20141020
  Receipt Date: 20141211
  Transmission Date: 20150528
  Serious: Yes (Death)
  Sender: FDA-Public Use
  Company Number: US-PFIZER INC-2014285726

PATIENT
  Age: 67 Year
  Sex: Female

DRUGS (1)
  1. XALKORI [Suspect]
     Active Substance: CRIZOTINIB
     Indication: BRAIN NEOPLASM
     Dosage: 250 MG, 2X/DAY
     Route: 048
     Dates: start: 20140428, end: 20140611

REACTIONS (3)
  - Product use issue [Unknown]
  - Brain neoplasm [Fatal]
  - Disease progression [Fatal]

NARRATIVE: CASE EVENT DATE: 2014
